FAERS Safety Report 4651119-1 (Version None)
Quarter: 2005Q2

REPORT INFORMATION
  Report Type: 
  Country: None (occurrence: None)
  Receive Date: 20050503
  Receipt Date: 20050425
  Transmission Date: 20051028
  Serious: Yes (Hospitalization)
  Sender: FDA-Public Use
  Company Number: US-JNJFOC-20050201000

PATIENT
  Sex: Female
  Weight: 58.06 kg

DRUGS (2)
  1. DURAGESIC-100 [Suspect]
     Route: 062
     Dates: start: 20041021
  2. ALEVE [Concomitant]
     Indication: PAIN
     Dosage: ONE TO TWO TABLETS EVERY 24 HOURS
     Route: 049
     Dates: start: 20040101

REACTIONS (5)
  - ALOPECIA [None]
  - APPLICATION SITE DERMATITIS [None]
  - CONDITION AGGRAVATED [None]
  - NERVE COMPRESSION [None]
  - THERAPEUTIC RESPONSE DECREASED [None]
